FAERS Safety Report 6800937-X (Version None)
Quarter: 2010Q2

REPORT INFORMATION
  Report Type: 
  Country: None (occurrence: None)
  Receive Date: 20100629
  Receipt Date: 20100618
  Transmission Date: 20101027
  Serious: Yes (Hospitalization)
  Sender: FDA-Public Use
  Company Number: PHHY2010DE40046

PATIENT
  Age: 49 Year
  Sex: Male

DRUGS (5)
  1. CARBAMAZEPINE [Suspect]
     Dosage: 800 MG, QD
     Route: 048
     Dates: start: 20100511, end: 20100512
  2. CARBAMAZEPINE [Suspect]
     Dosage: 600 MG, QD
     Route: 048
     Dates: start: 20100513
  3. CARBAMAZEPINE [Suspect]
     Dosage: 400 MG, QD
     Route: 048
     Dates: start: 20100514
  4. CARBAMAZEPINE [Suspect]
     Dosage: 200 MG, QD
     Route: 048
     Dates: start: 20100515, end: 20100517
  5. OMEPRAZOLE [Concomitant]
     Dosage: 20 MG, QD
     Route: 048
     Dates: start: 20100511, end: 20100518

REACTIONS (4)
  - DIZZINESS [None]
  - GAIT DISTURBANCE [None]
  - MALAISE [None]
  - NAUSEA [None]
